FAERS Safety Report 5427661-2 (Version None)
Quarter: 2007Q3

REPORT INFORMATION
  Report Type: 
  Country: None (occurrence: None)
  Receive Date: 20070823
  Receipt Date: 20070808
  Transmission Date: 20080115
  Serious: Yes (Hospitalization)
  Sender: FDA-Public Use
  Company Number: A-US2007-17345

PATIENT
  Age: 38 Year
  Sex: Male

DRUGS (9)
  1. TRACLEER [Suspect]
     Indication: PULMONARY HYPERTENSION
     Dosage: 62.5 MG, BID, ORAL; 125 MG, BID
     Route: 048
  2. VENTAVIS [Suspect]
     Indication: PULMONARY HYPERTENSION
  3. NIFEDIPINE [Concomitant]
  4. CLOPIDOGREL [Concomitant]
  5. FLUOXETINE [Concomitant]
  6. LANSOPRAZOLE [Concomitant]
  7. METHYLPREDNISOLONE [Concomitant]
  8. CYCLOPHOSPHAMIDE [Concomitant]
  9. LOSARTAN POTASSIUM [Concomitant]

REACTIONS (10)
  - AMPUTATION [None]
  - ANAEMIA [None]
  - CYANOSIS [None]
  - DISEASE PROGRESSION [None]
  - GANGRENE [None]
  - INFARCTION [None]
  - ISCHAEMIA [None]
  - MICROANGIOPATHY [None]
  - SCLERODACTYLIA [None]
  - TELANGIECTASIA [None]
